FAERS Safety Report 24184390 (Version 2)
Quarter: 2024Q3

REPORT INFORMATION
  Report Type: Spontaneous
  Country: JP (occurrence: JP)
  Receive Date: 20240807
  Receipt Date: 20240912
  Transmission Date: 20241016
  Serious: Yes (Other)
  Sender: ROCHE
  Company Number: JP-CHUGAI-2024026232

PATIENT
  Age: 25 Year
  Sex: Male

DRUGS (4)
  1. BEVACIZUMAB [Suspect]
     Active Substance: BEVACIZUMAB
     Indication: Neurofibromatosis
     Dosage: 10 MILLIGRAM/KILOGRAM, ONCE/2WEEKS
     Route: 042
     Dates: start: 202002, end: 2022
  2. BEVACIZUMAB [Suspect]
     Active Substance: BEVACIZUMAB
     Dosage: 10 MILLIGRAM/KILOGRAM, ONCE/2WEEKS
     Route: 042
     Dates: start: 2022, end: 202305
  3. BEVACIZUMAB [Suspect]
     Active Substance: BEVACIZUMAB
     Dosage: 10 MILLIGRAM/KILOGRAM, ONCE/2WEEKS
     Route: 042
     Dates: start: 2023, end: 20240202
  4. BEVACIZUMAB [Suspect]
     Active Substance: BEVACIZUMAB
     Dosage: 10 MILLIGRAM/KILOGRAM, ONCE/MONTH
     Route: 042
     Dates: start: 20240202

REACTIONS (3)
  - Clavicle fracture [Unknown]
  - COVID-19 [Unknown]
  - Off label use [Unknown]

NARRATIVE: CASE EVENT DATE: 20200201
